FAERS Safety Report 7609069-4 (Version None)
Quarter: 2011Q3

REPORT INFORMATION
  Report Type: 
  Country: None (occurrence: None)
  Receive Date: 20110714
  Receipt Date: 20110711
  Transmission Date: 20111222
  Serious: Yes (Death, Other)
  Sender: FDA-Public Use
  Company Number: MA-PFIZER INC-2011146817

PATIENT
  Age: 60 Year
  Sex: Female

DRUGS (5)
  1. SUTENT [Suspect]
     Indication: METASTATIC RENAL CELL CARCINOMA
     Dosage: 37.5 MG, CYCLIC, 4 WEEKS WITH 2WEEKS THERAPEUTIC WINDOW
     Route: 048
     Dates: start: 20110122, end: 20110511
  2. FLUCONAZOLE [Concomitant]
  3. INSULIN [Concomitant]
     Indication: DIABETES MELLITUS
     Dosage: 25 IU, 1X/DAY
     Route: 058
  4. SOLUPRED [Concomitant]
     Dosage: 80 MG, 1X/DAY
     Route: 048
  5. ATARAX [Concomitant]
     Indication: INSOMNIA

REACTIONS (3)
  - DISEASE PROGRESSION [None]
  - METASTATIC RENAL CELL CARCINOMA [None]
  - APLASIA [None]
